FAERS Safety Report 8791204 (Version 1)
Quarter: 2012Q4

REPORT INFORMATION
  Report Type: Spontaneous
  Country: ES (occurrence: None)
  Receive Date: 20120911
  Receipt Date: 20120911
  Transmission Date: 20130627
  Serious: Yes (Life-Threatening, Hospitalization)
  Sender: FDA-Public Use
  Company Number: DSM-2012-00938

PATIENT
  Age: 75 Year

DRUGS (5)
  1. AMLODIPINE AND OLMESARTAN MEDOXOMIL [Suspect]
     Dates: start: 2010, end: 20120620
  2. ARTIST [Suspect]
     Route: 048
     Dates: start: 2011, end: 20120620
  3. CORLENTOR [Suspect]
     Dates: start: 2011, end: 20120620
  4. SPIRONOLACTONE [Suspect]
     Route: 048
     Dates: start: 2010
  5. FUROSEMIDE [Suspect]
     Dates: start: 2010

REACTIONS (5)
  - Renal failure acute [None]
  - Nodal rhythm [None]
  - Hyperkalaemia [None]
  - Drug interaction [None]
  - Bradycardia [None]
